FAERS Safety Report 6342052-8 (Version None)
Quarter: 2009Q3

REPORT INFORMATION
  Report Type: 
  Country: None (occurrence: None)
  Receive Date: 20090903
  Receipt Date: 20090825
  Transmission Date: 20100115
  Serious: Yes (Other)
  Sender: FDA-Public Use
  Company Number: 2009SP021831

PATIENT
  Age: 29 Year
  Sex: Female

DRUGS (2)
  1. PREGNYL [Suspect]
     Indication: OVULATION INDUCTION
     Dosage: 5000 IU; ONCE
     Dates: start: 20090803, end: 20090803
  2. PREGNYL [Suspect]
     Indication: OVULATION INDUCTION
     Dosage: 5000 IU; ONCE
     Dates: start: 20090810, end: 20090810

REACTIONS (3)
  - ABORTION [None]
  - PAIN [None]
  - TWIN PREGNANCY [None]
